FAERS Safety Report 5678801-1 (Version None)
Quarter: 2008Q1

REPORT INFORMATION
  Report Type: 
  Country: None (occurrence: None)
  Receive Date: 20080324
  Receipt Date: 20080324
  Transmission Date: 20080703
  Serious: Yes (Other)
  Sender: FDA-Public Use
  Company Number: None

PATIENT
  Age: 17 Year
  Sex: Female
  Weight: 42.1845 kg

DRUGS (1)
  1. BOTOX COSMETIC [Suspect]
     Indication: MUCOPOLYSACCHARIDOSIS
     Dosage: ONE FULL BOTTLE -4 NEEDLES-  40 INJECTIONS  INTRACERVIC
     Route: 019

REACTIONS (10)
  - BACK PAIN [None]
  - DIZZINESS [None]
  - DYSPHAGIA [None]
  - INJECTION SITE PAIN [None]
  - MUSCLE DISORDER [None]
  - MUSCLE SPASMS [None]
  - MUSCULAR WEAKNESS [None]
  - MUSCULOSKELETAL PAIN [None]
  - NECK PAIN [None]
  - UNEVALUABLE EVENT [None]
